FAERS Safety Report 17370564 (Version 1)
Quarter: 2020Q1

REPORT INFORMATION
  Report Type: Spontaneous
  Country: US (occurrence: US)
  Receive Date: 20200205
  Receipt Date: 20200205
  Transmission Date: 20200409
  Serious: No
  Sender: FDA-Public Use
  Company Number: US-BAUSCH-BL-2020-002596

PATIENT
  Age: 86 Year
  Sex: Male
  Weight: 70.82 kg

DRUGS (1)
  1. TOBRAMYCIN AND DEXAMETHASONE [Suspect]
     Active Substance: DEXAMETHASONE\TOBRAMYCIN
     Indication: OCULAR HYPERAEMIA
     Dosage: ONE DROP IN EACH EYE ONCE DAILY FOR FIVE DAYS, INTRAOCULAR
     Route: 047
     Dates: start: 20200122

REACTIONS (3)
  - Muscular weakness [Unknown]
  - Inappropriate schedule of product administration [Unknown]
  - Feeling abnormal [Unknown]

NARRATIVE: CASE EVENT DATE: 20200122
